FAERS Safety Report 7107383-2 (Version None)
Quarter: 2010Q4

REPORT INFORMATION
  Report Type: 
  Country: None (occurrence: None)
  Receive Date: 20101112
  Receipt Date: 20101112
  Transmission Date: 20110411
  Serious: No
  Sender: FDA-Public Use
  Company Number: None

PATIENT
  Age: 85 Year
  Sex: Female

DRUGS (5)
  1. REVLIMID [Suspect]
     Dosage: 5MG DAILY ORALLY
     Route: 048
     Dates: start: 20101018, end: 20101020
  2. VICODIN [Concomitant]
  3. LEVOTHROID [Concomitant]
  4. OMEPRAZOLE [Concomitant]
  5. LOSARTAN [Concomitant]

REACTIONS (1)
  - SWELLING FACE [None]
